FAERS Safety Report 5495403-0 (Version None)
Quarter: 2007Q4

REPORT INFORMATION
  Report Type: 
  Country: None (occurrence: None)
  Receive Date: 20071023
  Receipt Date: 20071017
  Transmission Date: 20080405
  Serious: Yes (Other)
  Sender: FDA-Public Use
  Company Number: 2007329594

PATIENT
  Age: 36 Year
  Sex: Female

DRUGS (1)
  1. BENGAY ULTRA STRENGTH PATCH (MENTHOL) [Suspect]
     Indication: BACK PAIN
     Dosage: ONE PATCH FOR 2 HOURS, TOPICAL
     Route: 061
     Dates: start: 20070820, end: 20070820

REACTIONS (4)
  - APPLICATION SITE BURN [None]
  - APPLICATION SITE DISCOLOURATION [None]
  - APPLICATION SITE IRRITATION [None]
  - APPLICATION SITE PRURITUS [None]
